FAERS Safety Report 6762183-8 (Version None)
Quarter: 2010Q2

REPORT INFORMATION
  Report Type: 
  Country: None (occurrence: None)
  Receive Date: 20100609
  Receipt Date: 20100402
  Transmission Date: 20101027
  Serious: No
  Sender: FDA-Public Use
  Company Number: US-KINGPHARMUSA00001-K201000390

PATIENT
  Sex: Male

DRUGS (1)
  1. EMBEDA [Suspect]
     Dosage: 30 MG, UNK

REACTIONS (1)
  - NIGHTMARE [None]
